FAERS Safety Report 9681533 (Version 1)
Quarter: 2013Q4

REPORT INFORMATION
  Report Type: Spontaneous
  Country: US (occurrence: US)
  Receive Date: 20131111
  Receipt Date: 20131111
  Transmission Date: 20140711
  Serious: Yes (Other)
  Sender: FDA-Public Use
  Company Number: US-GLAXOSMITHKLINE-A1048698A

PATIENT
  Sex: Female

DRUGS (2)
  1. BENLYSTA [Suspect]
     Indication: SYSTEMIC LUPUS ERYTHEMATOSUS
     Route: 042
     Dates: start: 20121106
  2. PREDNISONE [Concomitant]

REACTIONS (3)
  - Systemic lupus erythematosus [Not Recovered/Not Resolved]
  - Pyrexia [Not Recovered/Not Resolved]
  - Infection [Not Recovered/Not Resolved]
